FAERS Safety Report 25213731 (Version 1)
Quarter: 2025Q2

REPORT INFORMATION
  Report Type: Spontaneous
  Country: GB (occurrence: GB)
  Receive Date: 20250418
  Receipt Date: 20250418
  Transmission Date: 20250717
  Serious: Yes (Other)
  Sender: PFIZER
  Company Number: None

PATIENT
  Age: 72 Year
  Sex: Female
  Weight: 48 kg

DRUGS (2)
  1. RITUXIMAB [Suspect]
     Active Substance: RITUXIMAB
     Indication: Rheumatoid arthritis
     Dates: start: 20250122
  2. CHLORPHENIRAMINE MALEATE [Concomitant]
     Active Substance: CHLORPHENIRAMINE MALEATE
     Indication: Allergy prophylaxis
     Dates: start: 20250122, end: 20250122

REACTIONS (10)
  - Swelling face [Unknown]
  - Eye swelling [Unknown]
  - Chest discomfort [Not Recovered/Not Resolved]
  - Nasopharyngitis [Unknown]
  - Hypersensitivity [Not Recovered/Not Resolved]
  - Erythema [Unknown]
  - Feeling hot [Unknown]
  - Palpitations [Unknown]
  - Pruritus [Unknown]
  - Dyspnoea [Not Recovered/Not Resolved]

NARRATIVE: CASE EVENT DATE: 20250219
